FAERS Safety Report 24422724 (Version 1)
Quarter: 2024Q4

REPORT INFORMATION
  Report Type: Spontaneous
  Country: ES (occurrence: ES)
  Receive Date: 20241010
  Receipt Date: 20241010
  Transmission Date: 20250115
  Serious: Yes (Other)
  Sender: INSUD PHARMA
  Company Number: ES-EXELTIS PHARMACEUTICAL HOLDING, S.L.-2409ES07601

PATIENT
  Sex: Female

DRUGS (4)
  1. DROSPIRENONE [Suspect]
     Active Substance: DROSPIRENONE
     Indication: Heavy menstrual bleeding
     Dosage: 4 MILLIGRAM, QD
     Route: 048
     Dates: start: 20230724, end: 20241002
  2. DROSPIRENONE [Suspect]
     Active Substance: DROSPIRENONE
     Indication: Endometriosis
  3. DROSPIRENONE [Suspect]
     Active Substance: DROSPIRENONE
     Indication: Polycystic ovarian syndrome
  4. MINOXIDIL [Concomitant]
     Active Substance: MINOXIDIL
     Indication: Alopecia
     Dosage: UNK
     Route: 061

REACTIONS (2)
  - Meningioma [Unknown]
  - Product use in unapproved indication [Unknown]
